FAERS Safety Report 9271568 (Version 1)
Quarter: 2013Q2

REPORT INFORMATION
  Report Type: Spontaneous
  Country: US (occurrence: US)
  Receive Date: 20130506
  Receipt Date: 20130506
  Transmission Date: 20140414
  Serious: No
  Sender: FDA-Public Use
  Company Number: US-PFIZER INC-2013136610

PATIENT
  Sex: Female

DRUGS (2)
  1. FLECTOR [Suspect]
     Dosage: UNK
  2. VOLTAREN [Suspect]
     Dosage: UNK

REACTIONS (2)
  - Expired drug administered [Unknown]
  - Product adhesion issue [Unknown]
